FAERS Safety Report 9713910 (Version 3)
Quarter: 2013Q4

REPORT INFORMATION
  Report Type: Spontaneous
  Country: AT (occurrence: AT)
  Receive Date: 20131126
  Receipt Date: 20131213
  Transmission Date: 20140711
  Serious: Yes (Hospitalization)
  Sender: FDA-Public Use
  Company Number: AT-B.I. PHARMACEUTICALS,INC./RIDGEFIELD-2013-BI-38284BE

PATIENT
  Age: 62 Year
  Sex: Male

DRUGS (1)
  1. PRADAXA [Suspect]
     Indication: ATRIAL FIBRILLATION
     Dosage: 220 NR
     Route: 048
     Dates: start: 201309, end: 201311

REACTIONS (5)
  - Liver function test abnormal [Recovered/Resolved]
  - Blood bilirubin increased [Recovered/Resolved]
  - Rib fracture [Unknown]
  - Fall [Unknown]
  - Cytomegalovirus infection [Unknown]
